FAERS Safety Report 8097646-9 (Version None)
Quarter: 2012Q1

REPORT INFORMATION
  Report Type: 
  Country: None (occurrence: None)
  Receive Date: 20120128
  Receipt Date: 20110706
  Transmission Date: 20120608
  Serious: No
  Sender: FDA-Public Use
  Company Number: US-ABBOTT-11P-163-0836521-00

PATIENT
  Sex: Female
  Weight: 68.1 kg

DRUGS (3)
  1. ASACOL [Concomitant]
     Indication: CROHN'S DISEASE
  2. HUMIRA [Suspect]
     Indication: CROHN'S DISEASE
     Dates: start: 20110201
  3. IRON [Concomitant]
     Indication: ANAEMIA

REACTIONS (9)
  - OEDEMA PERIPHERAL [None]
  - HYPERSENSITIVITY [None]
  - MUSCULAR WEAKNESS [None]
  - CROHN'S DISEASE [None]
  - WEIGHT INCREASED [None]
  - SENSATION OF HEAVINESS [None]
  - TENDON PAIN [None]
  - RASH [None]
  - ALOPECIA [None]
